FAERS Safety Report 5337786-8 (Version None)
Quarter: 2007Q2

REPORT INFORMATION
  Report Type: 
  Country: None (occurrence: None)
  Receive Date: 20070308
  Receipt Date: 20070123
  Transmission Date: 20071010
  Serious: No
  Sender: FDA-Public Use
  Company Number: 2006-BP-14627BP

PATIENT
  Age: 74 Year
  Sex: Female
  Weight: 41.73 kg

DRUGS (6)
  1. SPIRIVA [Suspect]
     Indication: CHRONIC OBSTRUCTIVE PULMONARY DISEASE
     Dosage: 18 MCG (18 MCG, 1 IN 1 D), IH
     Route: 055
     Dates: start: 20060201, end: 20061201
  2. ACIDOPHILUS               (LACTOBACILLUS ACIDOPHILUS) [Concomitant]
  3. ASPIRIN [Concomitant]
  4. MULTI-VITAMINS [Concomitant]
  5. ALBUTEROL [Concomitant]
  6. HYDROCODONE              (HYDROCODONE) [Concomitant]

REACTIONS (1)
  - VAGINAL DISCHARGE [None]
